FAERS Safety Report 24135847 (Version 2)
Quarter: 2024Q3

REPORT INFORMATION
  Report Type: Spontaneous
  Country: ES (occurrence: ES)
  Receive Date: 20240725
  Receipt Date: 20240726
  Transmission Date: 20241017
  Serious: Yes (Other)
  Sender: AUROBINDO
  Company Number: ES-AUROBINDO-AUR-APL-2024-036484

PATIENT
  Age: 47 Year
  Sex: Female

DRUGS (12)
  1. GEMCITABINE [Suspect]
     Active Substance: GEMCITABINE
     Indication: Endometrial stromal sarcoma
     Dosage: THIRD LINE
     Route: 065
     Dates: start: 201711
  2. DOCETAXEL [Suspect]
     Active Substance: DOCETAXEL\DOCETAXEL ANHYDROUS
     Indication: Endometrial stromal sarcoma
     Dosage: THIRD LINE
     Route: 065
  3. EPIRUBICIN [Suspect]
     Active Substance: EPIRUBICIN
     Indication: Endometrial stromal sarcoma
     Dosage: 6 CYCLES
     Route: 065
     Dates: start: 201606, end: 201612
  4. EPIRUBICIN [Suspect]
     Active Substance: EPIRUBICIN
     Dosage: FIFTH LINE TREATMEN
     Route: 065
  5. PAZOPANIB [Suspect]
     Active Substance: PAZOPANIB
     Indication: Endometrial stromal sarcoma
     Dosage: 800 MILLIGRAM, ONCE A DAY
     Route: 048
     Dates: start: 201706
  6. IFOSFAMIDE [Suspect]
     Active Substance: IFOSFAMIDE
     Indication: Endometrial stromal sarcoma
     Dosage: 6 CYCLES
     Route: 065
     Dates: start: 201606, end: 201612
  7. IFOSFAMIDE [Suspect]
     Active Substance: IFOSFAMIDE
     Dosage: FIFTH LINE TREATMEN
     Route: 065
  8. IFOSFAMIDE [Suspect]
     Active Substance: IFOSFAMIDE
     Dosage: HIGH DOSES AS SIXTH LINE FOR 1 YEAR
     Route: 065
     Dates: start: 201907, end: 202007
  9. OLARATUMAB [Suspect]
     Active Substance: OLARATUMAB
     Indication: Endometrial stromal sarcoma
     Dosage: THIRD LINE
     Route: 065
     Dates: start: 201711
  10. DEXRAZOXANE [Suspect]
     Active Substance: DEXRAZOXANE
     Indication: Endometrial stromal sarcoma
     Dosage: FIFTH LINE TREATMENT
     Route: 065
     Dates: start: 201906, end: 2019
  11. DACARBAZINE [Suspect]
     Active Substance: DACARBAZINE
     Indication: Endometrial stromal sarcoma
     Dosage: SEVENTH LINE AND RECEIVED SIX CYCLES
     Route: 065
  12. ERDAFITINIB [Suspect]
     Active Substance: ERDAFITINIB
     Indication: Endometrial stromal sarcoma
     Dosage: UNK
     Route: 065

REACTIONS (4)
  - Endometrial stromal sarcoma [Unknown]
  - Disease progression [Unknown]
  - Drug ineffective [Unknown]
  - Off label use [Unknown]
